FAERS Safety Report 7772218-1 (Version None)
Quarter: 2011Q3

REPORT INFORMATION
  Report Type: 
  Country: None (occurrence: None)
  Receive Date: 20110922
  Receipt Date: 20100914
  Transmission Date: 20111222
  Serious: No
  Sender: FDA-Public Use
  Company Number: US-ASTRAZENECA-2007UW18533

PATIENT
  Age: 14129 Day
  Sex: Female
  Weight: 120.7 kg

DRUGS (14)
  1. SEROQUEL [Suspect]
     Route: 048
     Dates: start: 19990420
  2. TEGRETOL [Concomitant]
     Dates: start: 20090312
  3. SEROQUEL [Suspect]
     Indication: BIPOLAR DISORDER
     Dosage: 50-800 MG
     Route: 048
     Dates: start: 19980820, end: 20070101
  4. SEROQUEL [Suspect]
     Route: 048
     Dates: start: 20050301
  5. ZYPREXA [Concomitant]
     Dates: start: 20040601, end: 20040701
  6. DEPAKOTE [Concomitant]
     Dosage: 500-1500 MG
     Dates: start: 19990420
  7. SYNTHROID [Concomitant]
     Dates: start: 20080101
  8. RISPERDAL [Concomitant]
     Indication: AFFECTIVE DISORDER
     Dates: start: 20031027, end: 20080101
  9. DEXATRIM [Concomitant]
     Dates: start: 19790101
  10. ZYPREXA [Concomitant]
     Dates: start: 19991230
  11. ZYPREXA [Concomitant]
     Dates: start: 20040514, end: 20040728
  12. ZOCOR [Concomitant]
     Dosage: 20 DAILY
     Dates: start: 20080101
  13. RISPERDAL [Concomitant]
     Indication: BIPOLAR DISORDER
     Dates: start: 20031027, end: 20080101
  14. SYNTHROID [Concomitant]
     Route: 048
     Dates: start: 20000612

REACTIONS (6)
  - DYSLIPIDAEMIA [None]
  - TYPE 1 DIABETES MELLITUS [None]
  - TYPE 2 DIABETES MELLITUS [None]
  - HYPERCHOLESTEROLAEMIA [None]
  - HYPERLIPIDAEMIA [None]
  - BLOOD TRIGLYCERIDES INCREASED [None]
